FAERS Safety Report 19026795 (Version 2)
Quarter: 2021Q2

REPORT INFORMATION
  Report Type: Spontaneous
  Country: US (occurrence: US)
  Receive Date: 20210318
  Receipt Date: 20210406
  Transmission Date: 20210717
  Serious: No
  Sender: FDA-Public Use
  Company Number: US-PFIZER INC-2021223244

PATIENT
  Age: 58 Year
  Sex: Female

DRUGS (4)
  1. ADVIL [Concomitant]
     Active Substance: IBUPROFEN
     Dosage: UNK
  2. APPLE CIDER VINEGAR [Concomitant]
     Active Substance: APPLE CIDER VINEGAR
     Dosage: UNK
  3. VITAMIN C [Concomitant]
     Active Substance: ASCORBIC ACID
     Dosage: UNK
  4. IBRANCE [Suspect]
     Active Substance: PALBOCICLIB
     Dosage: 125 MG, CYCLIC ,(21 DAYS ON, 7 DAYS OFF)
     Route: 048

REACTIONS (3)
  - Fatigue [Unknown]
  - White blood cell count decreased [Unknown]
  - Stomatitis [Unknown]
